FAERS Safety Report 16221478 (Version 2)
Quarter: 2019Q2

REPORT INFORMATION
  Report Type: Spontaneous
  Country: IT (occurrence: IT)
  Receive Date: 20190422
  Receipt Date: 20190530
  Transmission Date: 20190711
  Serious: Yes (Hospitalization)
  Sender: FDA-Public Use
  Company Number: IT-SA-2019SA103185

PATIENT
  Age: 84 Year
  Sex: Female

DRUGS (4)
  1. COUMADIN [Suspect]
     Active Substance: WARFARIN SODIUM
     Indication: ATRIAL FIBRILLATION
     Dosage: 5 DF, PRN
     Route: 048
     Dates: start: 20190307
  2. COUMADIN [Suspect]
     Active Substance: WARFARIN SODIUM
     Dosage: DOSE INCREASE
  3. CLEXANE [Suspect]
     Active Substance: ENOXAPARIN SODIUM
     Indication: ATRIAL FIBRILLATION
     Dosage: 1 DF, QD
     Route: 030
     Dates: start: 20190228, end: 20190307
  4. CLEXANE [Suspect]
     Active Substance: ENOXAPARIN SODIUM
     Dosage: UNK, DOSE INCREASE

REACTIONS (4)
  - International normalised ratio decreased [Recovered/Resolved]
  - Medication error [Recovered/Resolved]
  - Aphasia [Recovered/Resolved]
  - Facial paresis [Recovered/Resolved]

NARRATIVE: CASE EVENT DATE: 20190308
